FAERS Safety Report 6733425-X (Version None)
Quarter: 2010Q2

REPORT INFORMATION
  Report Type: 
  Country: None (occurrence: None)
  Receive Date: 20100520
  Receipt Date: 20100505
  Transmission Date: 20101027
  Serious: Yes (Death)
  Sender: FDA-Public Use
  Company Number: US-TYCO HEALTHCARE/MALLINCKRODT-T200902219

PATIENT
  Age: 14 Year
  Sex: Female

DRUGS (1)
  1. METHADONE [Suspect]
     Dosage: UNK
     Route: 048
     Dates: start: 20080601, end: 20080601

REACTIONS (2)
  - ACCIDENTAL OVERDOSE [None]
  - DRUG DIVERSION [None]
